FAERS Safety Report 18942017 (Version 2)
Quarter: 2021Q1

REPORT INFORMATION
  Report Type: Spontaneous
  Country: US (occurrence: US)
  Receive Date: 20210225
  Receipt Date: 20210302
  Transmission Date: 20210420
  Serious: No
  Sender: FDA-Public Use
  Company Number: US-PFIZER INC-2021146661

PATIENT
  Age: 57 Year
  Sex: Female
  Weight: 108.86 kg

DRUGS (1)
  1. METHYLPREDNISOLONE. [Suspect]
     Active Substance: METHYLPREDNISOLONE
     Dosage: 4 MG

REACTIONS (4)
  - Piloerection [Unknown]
  - Feeling abnormal [Unknown]
  - Pruritus [Unknown]
  - Chills [Unknown]
